FAERS Safety Report 10218316 (Version 1)
Quarter: 2014Q2

REPORT INFORMATION
  Report Type: Spontaneous
  Country: FR (occurrence: FR)
  Receive Date: 20140605
  Receipt Date: 20140605
  Transmission Date: 20141212
  Serious: Yes (Other)
  Sender: FDA-Public Use
  Company Number: FR-ABBVIE-14K-056-1244107-00

PATIENT
  Age: 47 Year
  Sex: Male

DRUGS (4)
  1. DEPAKINE CHRONO [Suspect]
     Indication: SCHIZOPHRENIA
     Dosage: EXTENDED RELEASE
     Route: 048
     Dates: start: 201311
  2. XEPLION [Suspect]
     Indication: SCHIZOPHRENIA
     Route: 030
     Dates: start: 20130814
  3. ANAFRANIL [Suspect]
     Indication: SCHIZOPHRENIA
     Route: 048
     Dates: start: 201311
  4. AVLOCARDYL [Suspect]
     Indication: PRODUCT USED FOR UNKNOWN INDICATION
     Route: 048
     Dates: start: 201311

REACTIONS (1)
  - Obesity [Not Recovered/Not Resolved]
